FAERS Safety Report 7009137-4 (Version None)
Quarter: 2010Q3

REPORT INFORMATION
  Report Type: 
  Country: None (occurrence: None)
  Receive Date: 20100923
  Receipt Date: 20100511
  Transmission Date: 20110219
  Serious: No
  Sender: FDA-Public Use
  Company Number: US-MYLANLABS-2010S1008439

PATIENT
  Age: 67 Year
  Sex: Female

DRUGS (1)
  1. FLUPHENAZINE HYDROCHLORIDE TABLETS, USP [Suspect]
     Indication: BIPOLAR DISORDER
     Route: 048
     Dates: start: 20080601, end: 20100101

REACTIONS (2)
  - EYE PAIN [None]
  - MYALGIA [None]
